FAERS Safety Report 10081859 (Version 3)
Quarter: 2014Q4

REPORT INFORMATION
  Report Type: Spontaneous
  Country: US (occurrence: US)
  Receive Date: 20140416
  Receipt Date: 20141211
  Transmission Date: 20150528
  Serious: No
  Sender: FDA-Public Use
  Company Number: US-009507513-1404USA007910

PATIENT
  Sex: Male
  Weight: 96.6 kg

DRUGS (2)
  1. PROPECIA [Suspect]
     Active Substance: FINASTERIDE
     Indication: ANDROGENETIC ALOPECIA
     Dosage: 1 MG, QD
     Route: 048
     Dates: start: 20080611, end: 20110307
  2. PROPECIA [Suspect]
     Active Substance: FINASTERIDE
     Indication: ALOPECIA

REACTIONS (6)
  - Cognitive disorder [Unknown]
  - Sexual dysfunction [Unknown]
  - Erectile dysfunction [Unknown]
  - Loss of libido [Unknown]
  - Inguinal hernia [Unknown]
  - Semen volume decreased [Unknown]

NARRATIVE: CASE EVENT DATE: 201005
